FAERS Safety Report 11497142 (Version 1)
Quarter: 2015Q3

REPORT INFORMATION
  Report Type: Spontaneous
  Country: IR (occurrence: IR)
  Receive Date: 20150911
  Receipt Date: 20150911
  Transmission Date: 20151125
  Serious: Yes (Other)
  Sender: FDA-Public Use
  Company Number: IR-ROXANE LABORATORIES, INC.-2015-RO-01501RO

PATIENT
  Sex: Male

DRUGS (4)
  1. MEDROXYPROGESTERONE ACETATE. [Concomitant]
     Active Substance: MEDROXYPROGESTERONE ACETATE
     Route: 065
  2. TIZANIDINE. [Concomitant]
     Active Substance: TIZANIDINE
     Dosage: 4 MG
     Route: 065
  3. METHADONE [Suspect]
     Active Substance: METHADONE HYDROCHLORIDE
     Indication: DRUG DEPENDENCE
     Dosage: 17 ML
     Route: 065
  4. THIORIDAZINE [Concomitant]
     Active Substance: THIORIDAZINE
     Dosage: 10 MG
     Route: 065

REACTIONS (2)
  - Priapism [Recovered/Resolved]
  - Libido increased [Recovered/Resolved]
